FAERS Safety Report 4627222-9 (Version None)
Quarter: 2005Q1

REPORT INFORMATION
  Report Type: 
  Country: None (occurrence: None)
  Receive Date: 20050331
  Receipt Date: 20050321
  Transmission Date: 20050727
  Serious: Yes (Hospitalization)
  Sender: FDA-Public Use
  Company Number: HQWYE241422MAR05

PATIENT
  Age: 76 Year
  Sex: Female
  Weight: 68 kg

DRUGS (20)
  1. RAPAMUNE [Suspect]
     Indication: PROPHYLAXIS AGAINST TRANSPLANT REJECTION
     Dosage: 3 MG 1X PER 1 DAY, ORAL
     Route: 048
     Dates: start: 20050304
  2. CELLCEPT [Suspect]
     Dosage: 1 G 2X PER  1 DAY, ORAL
     Route: 048
  3. MINOXIDIL [Suspect]
     Dosage: 5 MG 2X PER 1 DAY, ORAL
     Route: 048
  4. PREDNISONE [Suspect]
     Dosage: 10 MG 2X PER 1 DAY, ORAL
     Route: 048
  5. VALCYTE [Concomitant]
  6. PROTONIX [Concomitant]
  7. MYCELEX [Concomitant]
  8. MULTIVITAMINS, PLAIN (MULTIVITAMINS, PLAIN) [Concomitant]
  9. BACTRIM [Concomitant]
  10. DARVOCET-N 50 [Concomitant]
  11. LASIX [Concomitant]
  12. IMDUR [Concomitant]
  13. HYDRALAZINE HCL [Concomitant]
  14. TOPROL-XL [Concomitant]
  15. ASPIRIN [Concomitant]
  16. ZOLOFT [Concomitant]
  17. TRAZODONE HCL [Concomitant]
  18. NEURA-PHOS (POTASSIUM PHOSPHATE DIBASIC/POTASSIUM PHOSPHATE MONOBASIC/ [Concomitant]
  19. PHENERGAN [Concomitant]
  20. K-DUR 10 [Concomitant]

REACTIONS (22)
  - AORTIC DISORDER [None]
  - BLOOD BICARBONATE INCREASED [None]
  - BLOOD PH INCREASED [None]
  - BLOOD SODIUM DECREASED [None]
  - BUNDLE BRANCH BLOCK LEFT [None]
  - BUNDLE BRANCH BLOCK RIGHT [None]
  - CARDIAC FAILURE CONGESTIVE [None]
  - CARDIOMEGALY [None]
  - DYSPNOEA [None]
  - EJECTION FRACTION DECREASED [None]
  - HAEMATOCRIT DECREASED [None]
  - HAEMOGLOBIN DECREASED [None]
  - PCO2 DECREASED [None]
  - PLEURAL EFFUSION [None]
  - PO2 DECREASED [None]
  - PO2 INCREASED [None]
  - PULMONARY CONGESTION [None]
  - PULMONARY OEDEMA [None]
  - RED BLOOD CELL COUNT DECREASED [None]
  - SCOLIOSIS [None]
  - SYNCOPE VASOVAGAL [None]
  - URETERIC STENOSIS [None]
